FAERS Safety Report 13388903 (Version 1)
Quarter: 2017Q1

REPORT INFORMATION
  Report Type: Spontaneous
  Country: US (occurrence: US)
  Receive Date: 20170331
  Receipt Date: 20170331
  Transmission Date: 20170429
  Serious: Yes (Other)
  Sender: FDA-Public Use
  Company Number: US-ASTRAZENECA-2017SE32786

PATIENT
  Age: 57 Year
  Sex: Female
  Weight: 90.7 kg

DRUGS (6)
  1. BRILINTA [Suspect]
     Active Substance: TICAGRELOR
     Indication: STENT PLACEMENT
     Route: 048
     Dates: start: 201610
  2. ROSUVASTATIN CALCIUM. [Suspect]
     Active Substance: ROSUVASTATIN CALCIUM
     Indication: BLOOD CHOLESTEROL ABNORMAL
     Route: 048
     Dates: start: 2008
  3. ONE A DAY WOMENS [Concomitant]
     Indication: HYPOVITAMINOSIS
  4. ENALAPRIL MALEATE. [Concomitant]
     Active Substance: ENALAPRIL MALEATE
     Indication: BLOOD PRESSURE ABNORMAL
     Dates: start: 2008
  5. LOW DOSE ASPIRIN [Concomitant]
     Active Substance: ASPIRIN
     Dates: start: 2008
  6. HYDROCHLOROTHIAZIDE. [Concomitant]
     Active Substance: HYDROCHLOROTHIAZIDE
     Indication: BLOOD PRESSURE ABNORMAL
     Dates: start: 201702

REACTIONS (17)
  - Asbestosis [Unknown]
  - Crohn^s disease [Not Recovered/Not Resolved]
  - Affect lability [Unknown]
  - Crohn^s disease [Recovering/Resolving]
  - Fatigue [Not Recovered/Not Resolved]
  - Lung neoplasm malignant [Unknown]
  - Feeling hot [Unknown]
  - Chronic obstructive pulmonary disease [Unknown]
  - Intentional product misuse [Unknown]
  - Myocardial infarction [Unknown]
  - Insomnia [Not Recovered/Not Resolved]
  - Dizziness [Unknown]
  - Arthritis [Not Recovered/Not Resolved]
  - Pain [Unknown]
  - Tremor [Unknown]
  - Feeling abnormal [Not Recovered/Not Resolved]
  - Emphysema [Unknown]

NARRATIVE: CASE EVENT DATE: 2008
